FAERS Safety Report 24347226 (Version 1)
Quarter: 2024Q3

REPORT INFORMATION
  Report Type: Spontaneous
  Country: US (occurrence: US)
  Receive Date: 20240921
  Receipt Date: 20240921
  Transmission Date: 20241016
  Serious: No
  Sender: MERCK
  Company Number: US-009507513-2409USA001899

PATIENT
  Sex: Female
  Weight: 57.143 kg

DRUGS (22)
  1. WINREVAIR [Suspect]
     Active Substance: SOTATERCEPT-CSRK
  2. REMODULIN [Suspect]
     Active Substance: TREPROSTINIL
     Indication: Pulmonary arterial hypertension
     Dosage: STRENGTH: 2.5  MG/ML, 0.082 MICROGRAM PER KILOGRAM, CONTINUING
     Route: 041
     Dates: start: 20230811
  3. PLAQUENIL [Concomitant]
     Active Substance: HYDROXYCHLOROQUINE SULFATE
  4. TYLENOL [Concomitant]
     Active Substance: ACETAMINOPHEN
  5. IMODIUM A-D [Concomitant]
     Active Substance: LOPERAMIDE HYDROCHLORIDE
  6. VITAMIN D3 [Concomitant]
     Active Substance: CHOLECALCIFEROL
  7. LASIX [Concomitant]
     Active Substance: FUROSEMIDE
  8. OPSUMIT [Concomitant]
     Active Substance: MACITENTAN
  9. ADEMPAS [Concomitant]
     Active Substance: RIOCIGUAT
  10. ALBUTEROL SULFATE [Concomitant]
     Active Substance: ALBUTEROL SULFATE
  11. VITAMINS NOS [Concomitant]
     Active Substance: VITAMINS
  12. FLUTICASONE PROPIONATE [Concomitant]
     Active Substance: FLUTICASONE PROPIONATE
  13. BIOTIN [Concomitant]
     Active Substance: BIOTIN
  14. SYNTHROID [Concomitant]
     Active Substance: LEVOTHYROXINE SODIUM
  15. OXYGEN [Concomitant]
     Active Substance: OXYGEN
  16. FOLIC ACID [Concomitant]
     Active Substance: FOLIC ACID
  17. FERROUS GLUCONATE [Concomitant]
     Active Substance: FERROUS GLUCONATE
  18. PREDNISONE [Concomitant]
     Active Substance: PREDNISONE
  19. DIGOXIN [Concomitant]
     Active Substance: DIGOXIN
  20. MIDODRINE [Concomitant]
     Active Substance: MIDODRINE
  21. SPIRONOLACTONE AND HYDROCHLOROTHIAZIDE [Concomitant]
     Active Substance: HYDROCHLOROTHIAZIDE\SPIRONOLACTONE
  22. PRAVASTATIN SODIUM [Concomitant]
     Active Substance: PRAVASTATIN SODIUM

REACTIONS (1)
  - Haemorrhage [Unknown]
